FAERS Safety Report 12646186 (Version 1)
Quarter: 2016Q3

REPORT INFORMATION
  Report Type: Spontaneous
  Country: US (occurrence: US)
  Receive Date: 20160811
  Receipt Date: 20160811
  Transmission Date: 20161109
  Serious: No
  Sender: FDA-Public Use
  Company Number: US-ENDO PHARMACEUTICALS INC.-2015-003827

PATIENT
  Sex: Female
  Weight: 77.18 kg

DRUGS (8)
  1. AZATHIOPRINE. [Suspect]
     Active Substance: AZATHIOPRINE
     Indication: RHEUMATOID ARTHRITIS
     Route: 065
  2. PREDNISONE TABLETS 5MG [Suspect]
     Active Substance: PREDNISONE
     Indication: RHEUMATOID ARTHRITIS
     Route: 065
     Dates: start: 2015
  3. PREDNISONE TABLETS 5MG [Suspect]
     Active Substance: PREDNISONE
     Route: 065
  4. IBUPROFEN. [Concomitant]
     Active Substance: IBUPROFEN
     Indication: PRODUCT USED FOR UNKNOWN INDICATION
  5. AZATHIOPRINE. [Suspect]
     Active Substance: AZATHIOPRINE
     Route: 065
     Dates: start: 201503
  6. PREDNISONE TABLETS 5MG [Suspect]
     Active Substance: PREDNISONE
     Route: 065
  7. XELJANZ [Suspect]
     Active Substance: TOFACITINIB CITRATE
     Indication: RHEUMATOID ARTHRITIS
     Route: 065
     Dates: start: 201503
  8. ESCITALOPRAM [Concomitant]
     Active Substance: ESCITALOPRAM OXALATE
     Indication: ANXIETY

REACTIONS (3)
  - Contusion [Unknown]
  - Skin atrophy [Unknown]
  - Skin injury [Unknown]

NARRATIVE: CASE EVENT DATE: 2015
